FAERS Safety Report 7417507-5 (Version None)
Quarter: 2011Q2

REPORT INFORMATION
  Report Type: 
  Country: None (occurrence: None)
  Receive Date: 20110415
  Receipt Date: 20110404
  Transmission Date: 20111010
  Serious: Yes (Hospitalization)
  Sender: FDA-Public Use
  Company Number: DE-PFIZER INC-2010000711

PATIENT
  Age: 79 Year
  Sex: Female
  Weight: 85 kg

DRUGS (10)
  1. LEVOFLOXACIN [Interacting]
     Indication: URINARY TRACT INFECTION
     Dosage: 500 MG, 1X/DAY
     Dates: start: 20090811, end: 20090819
  2. SYMBICORT [Concomitant]
     Dosage: 1 DF, 2X/DAY
     Route: 055
  3. UNASYN [Suspect]
     Indication: PNEUMONIA
     Dosage: 750 MG, 2X/DAY
     Route: 048
     Dates: start: 20091010, end: 20091017
  4. METOCLOPRAMIDE [Concomitant]
     Indication: NAUSEA
     Dosage: 6.7 MG, 3X/DAY
  5. RAMIPRIL [Concomitant]
     Indication: CARDIAC FAILURE
     Dosage: 2.5 MG, 1X/DAY
     Route: 048
     Dates: start: 20091001
  6. TORASEMIDE [Concomitant]
     Indication: CARDIAC FAILURE
     Dosage: 10 MG, 1X/DAY
     Dates: start: 20090701, end: 20091113
  7. COPYRKAL [Concomitant]
     Indication: HEADACHE
  8. DIGITOXIN [Concomitant]
     Indication: ATRIAL FIBRILLATION
     Dosage: 0.07 MG, 1X/DAY
     Dates: start: 20091001
  9. PANTOPRAZOLE SODIUM [Interacting]
     Indication: GASTRITIS
     Dosage: 40 MG, 1X/DAY
     Route: 048
     Dates: start: 20090701
  10. TORASEMIDE [Concomitant]
     Dosage: 5 MG, 1X/DAY
     Route: 048
     Dates: start: 20091114

REACTIONS (2)
  - CLOSTRIDIUM DIFFICILE COLITIS [None]
  - DRUG INTERACTION [None]
